FAERS Safety Report 4999747-8 (Version None)
Quarter: 2006Q2

REPORT INFORMATION
  Report Type: 
  Country: None (occurrence: None)
  Receive Date: 20060511
  Receipt Date: 20060429
  Transmission Date: 20061013
  Serious: Yes (Other)
  Sender: FDA-Public Use
  Company Number: GB-GLAXOSMITHKLINE-B0421936A

PATIENT
  Age: 49 Year
  Sex: Female
  Weight: 82 kg

DRUGS (13)
  1. ROSIGLITAZONE [Suspect]
     Indication: DIABETES MELLITUS NON-INSULIN-DEPENDENT
     Dosage: 4MG PER DAY
     Dates: start: 20060317
  2. ISOSORBIDE MONONITRATE [Concomitant]
     Dosage: 20MG PER DAY
     Route: 065
  3. BETAHISTINE [Concomitant]
     Dosage: 16MG PER DAY
     Route: 065
  4. DILZEM [Concomitant]
     Dosage: 180MG PER DAY
     Route: 065
  5. BEZAFIBRATE [Concomitant]
     Dosage: 400MG PER DAY
     Route: 065
  6. SALMETEROL + FLUTICASONE [Concomitant]
  7. FUROSEMIDE [Concomitant]
     Dosage: 40MG PER DAY
     Route: 065
  8. LATANOPROST [Concomitant]
     Route: 047
  9. METFORMIN [Concomitant]
     Dosage: 850MG PER DAY
     Route: 065
  10. ASPIRIN [Concomitant]
     Dosage: 75MG PER DAY
     Route: 065
  11. DIAZEPAM [Concomitant]
     Dosage: 2MG PER DAY
     Route: 065
  12. GLYCERYL TRINITRATE [Concomitant]
     Dosage: 400MCG PER DAY
     Route: 065
  13. GLICLAZIDE [Concomitant]
     Dosage: 80MG PER DAY
     Route: 065

REACTIONS (1)
  - ARTHRALGIA [None]
